FAERS Safety Report 21932172 (Version 1)
Quarter: 2023Q1

REPORT INFORMATION
  Report Type: Spontaneous
  Country: US (occurrence: None)
  Receive Date: 20230131
  Receipt Date: 20230131
  Transmission Date: 20230417
  Serious: No
  Sender: FDA-Public Use
  Company Number: None

PATIENT
  Age: 75 Year
  Sex: Male
  Weight: 83.01 kg

DRUGS (2)
  1. IRINOTECAN HYDROCHLORIDE [Suspect]
     Active Substance: IRINOTECAN HYDROCHLORIDE
     Indication: Colon cancer stage IV
     Dosage: 270 MG ONCE IV ?
     Route: 042
     Dates: start: 20221025, end: 20221025
  2. ATROPINE SULFATE [Suspect]
     Active Substance: ATROPINE SULFATE
     Indication: Diarrhoea
     Dosage: 0.4 MG ONCE IV
     Route: 042
     Dates: start: 20221025, end: 20221025

REACTIONS (4)
  - Flushing [None]
  - Dizziness [None]
  - Supraventricular tachycardia [None]
  - Hypertension [None]

NARRATIVE: CASE EVENT DATE: 20221025
